FAERS Safety Report 25558328 (Version 1)
Quarter: 2025Q3

REPORT INFORMATION
  Report Type: Spontaneous
  Country: US (occurrence: US)
  Receive Date: 20250715
  Receipt Date: 20250715
  Transmission Date: 20251020
  Serious: No
  Sender: NOVO NORDISK
  Company Number: US-NOVOPROD-1410718

PATIENT
  Age: 69 Year
  Sex: Female

DRUGS (3)
  1. OZEMPIC [Suspect]
     Active Substance: SEMAGLUTIDE
     Indication: Weight control
     Dosage: 0.5 MG, QW
     Dates: start: 202304, end: 2023
  2. OZEMPIC [Suspect]
     Active Substance: SEMAGLUTIDE
     Dates: start: 202502
  3. OZEMPIC [Suspect]
     Active Substance: SEMAGLUTIDE
     Indication: Proteinuria
     Dosage: 0.25 MG, QW
     Dates: start: 202412

REACTIONS (2)
  - Biopsy kidney [Unknown]
  - Product use in unapproved indication [Unknown]
